FAERS Safety Report 14837522 (Version 2)
Quarter: 2018Q2

REPORT INFORMATION
  Report Type: Report from Study
  Country: CO (occurrence: CO)
  Receive Date: 20180502
  Receipt Date: 20180527
  Transmission Date: 20180711
  Serious: Yes (Other)
  Sender: FDA-Public Use
  Company Number: PHHY2018CO073449

PATIENT
  Sex: Male
  Weight: 61 kg

DRUGS (6)
  1. CORYOL [Suspect]
     Active Substance: CARVEDILOL
     Indication: PRODUCT USED FOR UNKNOWN INDICATION
     Route: 065
  2. FUROSEMIDE. [Concomitant]
     Active Substance: FUROSEMIDE
     Indication: PRODUCT USED FOR UNKNOWN INDICATION
     Route: 065
  3. ENTRESTO [Suspect]
     Active Substance: SACUBITRIL\VALSARTAN
     Indication: CARDIAC FAILURE
     Dosage: 100 MG (SACUBITRIL 49MG AND VALSRTAN 51MG), Q12H
     Route: 048
     Dates: start: 20180323
  4. ENTRESTO [Suspect]
     Active Substance: SACUBITRIL\VALSARTAN
     Dosage: 100 MG (SACUBITRIL 49MG AND VALSRTAN 51MG), Q12H
     Route: 048
     Dates: start: 20180517
  5. ENTRESTO [Suspect]
     Active Substance: SACUBITRIL\VALSARTAN
     Dosage: 0.5 DF (SACUBITRIL 49MG AND VALSRTAN 51MG), Q12H
     Route: 048
     Dates: start: 201804
  6. EPLERENONE. [Concomitant]
     Active Substance: EPLERENONE
     Indication: PRODUCT USED FOR UNKNOWN INDICATION
     Route: 065

REACTIONS (7)
  - Decreased appetite [Recovering/Resolving]
  - Asthenia [Recovering/Resolving]
  - Dizziness [Recovering/Resolving]
  - Cardiac failure [Unknown]
  - Fatigue [Recovering/Resolving]
  - Wrong technique in product usage process [Unknown]
  - Depression [Recovering/Resolving]
